FAERS Safety Report 7685913-X (Version None)
Quarter: 2011Q3

REPORT INFORMATION
  Report Type: 
  Country: None (occurrence: None)
  Receive Date: 20110815
  Receipt Date: 20110815
  Transmission Date: 20111222
  Serious: Yes (Life-Threatening, Hospitalization)
  Sender: FDA-Public Use
  Company Number: None

PATIENT
  Sex: Male
  Weight: 70.3075 kg

DRUGS (2)
  1. PRADAXA [Suspect]
     Indication: CARDIAC FAILURE CONGESTIVE
     Dosage: 150 MG 2X DAILY ORAL
     Route: 048
  2. PRADAXA [Suspect]
     Indication: ATRIAL FIBRILLATION
     Dosage: 150 MG 2X DAILY ORAL
     Route: 048

REACTIONS (3)
  - MOUTH HAEMORRHAGE [None]
  - HAEMORRHAGE [None]
  - RECTAL HAEMORRHAGE [None]
